FAERS Safety Report 16821614 (Version 2)
Quarter: 2019Q4

REPORT INFORMATION
  Report Type: Spontaneous
  Country: ES (occurrence: ES)
  Receive Date: 20190918
  Receipt Date: 20191028
  Transmission Date: 20200122
  Serious: Yes (Death, Other)
  Sender: FDA-Public Use
  Company Number: ES-ACTELION-A-CH2019-195513

PATIENT
  Sex: Male

DRUGS (13)
  1. FLUOXETINA [Concomitant]
     Active Substance: FLUOXETINE HYDROCHLORIDE
  2. OXYGEN. [Concomitant]
     Active Substance: OXYGEN
  3. PREDNISONA [Concomitant]
     Active Substance: PREDNISONE
     Dosage: 40 MG, QD
  4. UPTRAVI [Suspect]
     Active Substance: SELEXIPAG
     Indication: PULMONARY ARTERIAL HYPERTENSION
     Dosage: UNK
     Route: 048
     Dates: start: 20190307, end: 20190827
  5. AMIODARONE [Concomitant]
     Active Substance: AMIODARONE
  6. IPRATROPIO [Concomitant]
     Active Substance: IPRATROPIUM BROMIDE
  7. SEPTRIN [Concomitant]
     Active Substance: SULFAMETHOXAZOLE\TRIMETHOPRIM
  8. FUROSEMIDA [Concomitant]
     Active Substance: FUROSEMIDE
  9. LOSARTAN. [Concomitant]
     Active Substance: LOSARTAN
  10. SIMVASTATINA [Concomitant]
     Active Substance: SIMVASTATIN
  11. TRACLEER [Suspect]
     Active Substance: BOSENTAN
     Indication: PULMONARY ARTERIAL HYPERTENSION
     Dosage: UNK
     Route: 048
     Dates: start: 20130221
  12. TADALAFILO (2892A) [Suspect]
     Active Substance: TADALAFIL
     Indication: PULMONARY ARTERIAL HYPERTENSION
     Dosage: UNK
     Route: 065
     Dates: start: 20140515
  13. DILTIAZEM. [Concomitant]
     Active Substance: DILTIAZEM

REACTIONS (2)
  - Pneumothorax [Fatal]
  - Emphysema [Not Recovered/Not Resolved]
